FAERS Safety Report 10215207 (Version 3)
Quarter: 2014Q3

REPORT INFORMATION
  Report Type: Spontaneous
  Country: JP (occurrence: JP)
  Receive Date: 20140603
  Receipt Date: 20140806
  Transmission Date: 20150326
  Serious: Yes (Other)
  Sender: FDA-Public Use
  Company Number: PHHY2014JP066977

PATIENT
  Age: 90 Year
  Sex: Female

DRUGS (6)
  1. DIGOSIN [Concomitant]
     Active Substance: DIGOXIN
     Dosage: 0.67 MG, UNK
     Dates: start: 201404
  2. EXELON PATCH [Suspect]
     Active Substance: RIVASTIGMINE
     Indication: DEMENTIA ALZHEIMER^S TYPE
     Dosage: 9 MG, DAILY ( 4.6MG/24HOURS)
     Route: 062
  3. EXELON PATCH [Suspect]
     Active Substance: RIVASTIGMINE
     Dosage: 13.5 MG, DAILY (6.9 MG/24 HOURS)
     Route: 062
     Dates: start: 20140513
  4. LASIX [Concomitant]
     Active Substance: FUROSEMIDE
     Dosage: 12 MG, UNK
     Route: 048
  5. BAYASPIRIN [Concomitant]
     Active Substance: ASPIRIN
     Dosage: 100 MG, UNK
     Route: 048
  6. DIGOSIN [Concomitant]
     Active Substance: DIGOXIN
     Dosage: 0.5 MG, UNK

REACTIONS (2)
  - Dizziness [Unknown]
  - Loss of consciousness [Recovered/Resolved]

NARRATIVE: CASE EVENT DATE: 20140513
